FAERS Safety Report 13601160 (Version 1)
Quarter: 2017Q2

REPORT INFORMATION
  Report Type: Report from Study
  Country: FR (occurrence: FR)
  Receive Date: 20170601
  Receipt Date: 20170601
  Transmission Date: 20170830
  Serious: Yes (Other)
  Sender: FDA-Public Use
  Company Number: FR-ROCHE-1132472

PATIENT
  Age: 45 Year
  Sex: Female
  Weight: 67 kg

DRUGS (34)
  1. LAMALINE [Concomitant]
     Active Substance: ACETAMINOPHEN\CAFFEINE\OPIUM
     Route: 048
     Dates: start: 201205
  2. LAROXYL [Concomitant]
     Active Substance: AMITRIPTYLINE
     Dosage: 10 TEARS
     Route: 048
     Dates: start: 2012
  3. SKENAN [Concomitant]
     Active Substance: MORPHINE SULFATE
     Indication: MALIGNANT MELANOMA
     Route: 048
     Dates: start: 20120712, end: 20121018
  4. CORTANCYL [Concomitant]
     Active Substance: PREDNISONE
     Route: 048
     Dates: start: 20121016, end: 20121018
  5. OGASTORO [Concomitant]
     Active Substance: LANSOPRAZOLE
     Route: 048
     Dates: start: 20120712, end: 20121018
  6. LOVENOX [Concomitant]
     Active Substance: ENOXAPARIN SODIUM
     Route: 042
     Dates: start: 20121019, end: 20121019
  7. INEXIUM [Concomitant]
     Active Substance: ESOMEPRAZOLE
     Route: 042
     Dates: start: 20121019, end: 20121108
  8. VEMURAFENIB [Suspect]
     Active Substance: VEMURAFENIB
     Indication: MALIGNANT MELANOMA
     Dosage: LAST DOSE PRIOR TO SAE 25/JUL/2012
     Route: 048
     Dates: start: 20120628, end: 20121107
  9. MUPHORAN [Concomitant]
     Active Substance: FOTEMUSTINE
     Dosage: SINGLE DOSE
     Route: 042
     Dates: start: 20121122, end: 20121122
  10. RIVOTRIL [Concomitant]
     Active Substance: CLONAZEPAM
     Dosage: 1 MG/ML OF CONCENTRATION, SINGLE DOSE
     Route: 042
     Dates: start: 20121028, end: 20121028
  11. SEROPLEX [Concomitant]
     Active Substance: ESCITALOPRAM OXALATE
     Route: 048
     Dates: start: 20120712, end: 20121202
  12. MORPHINE [Concomitant]
     Active Substance: MORPHINE
     Route: 048
     Dates: start: 20121018, end: 20121021
  13. NAPROXEN SODIUM. [Concomitant]
     Active Substance: NAPROXEN SODIUM
     Route: 048
     Dates: start: 201205, end: 20120823
  14. TRAMADOL. [Concomitant]
     Active Substance: TRAMADOL
     Indication: MALIGNANT MELANOMA
     Route: 048
     Dates: start: 20120627
  15. ACTISKENAN [Concomitant]
     Active Substance: MORPHINE SULFATE
     Indication: MALIGNANT MELANOMA
     Route: 048
     Dates: start: 20120627
  16. CONTRAMAL [Concomitant]
     Active Substance: TRAMADOL HYDROCHLORIDE
     Indication: MALIGNANT MELANOMA
     Route: 048
     Dates: start: 20120626, end: 20120626
  17. ZOMETA [Concomitant]
     Active Substance: ZOLEDRONIC ACID
     Indication: PROPHYLAXIS
     Route: 042
     Dates: start: 20120712, end: 20120712
  18. ACTISKENAN [Concomitant]
     Active Substance: MORPHINE SULFATE
     Route: 048
     Dates: start: 20120712, end: 20121018
  19. KEPPRA [Concomitant]
     Active Substance: LEVETIRACETAM
     Route: 048
     Dates: start: 20121019, end: 20121202
  20. FLAGYL [Concomitant]
     Active Substance: METRONIDAZOLE\METRONIDAZOLE HYDROCHLORIDE
     Route: 042
     Dates: start: 20121019, end: 20121107
  21. ZOVIRAX [Concomitant]
     Active Substance: ACYCLOVIR
     Route: 042
     Dates: start: 20121028, end: 20121202
  22. XYLOCAINE VISCOUS [Concomitant]
     Active Substance: LIDOCAINE HYDROCHLORIDE
     Dosage: 6 APPLICATION
     Route: 048
     Dates: start: 20121028, end: 20121202
  23. PACKED RED BLOOD CELLS [Concomitant]
     Active Substance: HUMAN RED BLOOD CELL
     Dosage: 2 PELLET, SINGLE DOSE
     Route: 042
     Dates: start: 20121024, end: 20121024
  24. DEBRIDAT [Concomitant]
     Active Substance: TRIMEBUTINE MALEATE
     Route: 048
     Dates: start: 20120712, end: 20121018
  25. VIBRAMYCINE [Concomitant]
     Route: 048
     Dates: start: 20121029, end: 20121105
  26. OGAST [Concomitant]
     Active Substance: LANSOPRAZOLE
     Route: 048
     Dates: start: 2012
  27. PRIMPERAN [Concomitant]
     Active Substance: METOCLOPRAMIDE HYDROCHLORIDE
     Route: 042
     Dates: start: 20121019, end: 20121023
  28. ROCEPHINE [Concomitant]
     Active Substance: CEFTRIAXONE SODIUM
     Route: 042
     Dates: start: 20121019, end: 20121107
  29. SEROPLEX [Concomitant]
     Active Substance: ESCITALOPRAM OXALATE
     Route: 048
     Dates: start: 2012
  30. TRI-MINULET [Concomitant]
     Active Substance: ETHINYL ESTRADIOL\GESTODENE
     Indication: ORAL CONTRACEPTION
     Route: 048
  31. DOLIPRANE [Concomitant]
     Active Substance: ACETAMINOPHEN
     Indication: MALIGNANT MELANOMA
     Route: 048
     Dates: start: 20120627
  32. MORPHINE [Concomitant]
     Active Substance: MORPHINE
     Route: 042
     Dates: start: 20121018, end: 20121202
  33. MORPHINE [Concomitant]
     Active Substance: MORPHINE
     Route: 042
     Dates: start: 20121021, end: 20121023
  34. VIBRAMYCINE [Concomitant]
     Route: 042
     Dates: start: 20121019, end: 20121019

REACTIONS (1)
  - Malignant melanoma [Recovered/Resolved]

NARRATIVE: CASE EVENT DATE: 20120726
